FAERS Safety Report 14111080 (Version 3)
Quarter: 2018Q1

REPORT INFORMATION
  Report Type: Spontaneous
  Country: US (occurrence: US)
  Receive Date: 20171020
  Receipt Date: 20180201
  Transmission Date: 20180508
  Serious: No
  Sender: FDA-Public Use
  Company Number: US-PFIZER INC-2017448065

PATIENT
  Sex: Female

DRUGS (4)
  1. ZITHROMAX [Suspect]
     Active Substance: AZITHROMYCIN DIHYDRATE
     Indication: MYCOBACTERIUM ABSCESSUS INFECTION
     Dosage: 200 MG, DAILY
     Dates: start: 2012
  2. ZITHROMAX [Suspect]
     Active Substance: AZITHROMYCIN DIHYDRATE
     Indication: LUNG DISORDER
     Dosage: 250 MG, UNK
  3. AMIKACIN [Concomitant]
     Active Substance: AMIKACIN
     Dosage: UNK UNK, (3 TIMES WEEKL)
  4. CLOFAZIMINE [Concomitant]
     Active Substance: CLOFAZIMINE
     Dosage: 50 MG, DAILY
     Dates: start: 2012

REACTIONS (2)
  - Off label use [Not Recovered/Not Resolved]
  - Drug ineffective [Not Recovered/Not Resolved]

NARRATIVE: CASE EVENT DATE: 2012
